FAERS Safety Report 10015324 (Version 2)
Quarter: 2014Q1

REPORT INFORMATION
  Report Type: Spontaneous
  Country: US (occurrence: US)
  Receive Date: 20140317
  Receipt Date: 20140319
  Transmission Date: 20141002
  Serious: Yes (Disabling, Other)
  Sender: FDA-Public Use
  Company Number: US-SA-2014SA029979

PATIENT
  Sex: Male

DRUGS (1)
  1. PLAVIX [Suspect]
     Indication: PRODUCT USED FOR UNKNOWN INDICATION
     Route: 048
     Dates: start: 20030801, end: 20091026

REACTIONS (8)
  - Injury [Unknown]
  - Physical disability [Unknown]
  - Tension [Unknown]
  - Anhedonia [Unknown]
  - Pain [Unknown]
  - Haemorrhage [Unknown]
  - Purpura [Unknown]
  - Contusion [Unknown]
